FAERS Safety Report 7541023-3 (Version None)
Quarter: 2011Q2

REPORT INFORMATION
  Report Type: 
  Country: None (occurrence: None)
  Receive Date: 20110610
  Receipt Date: 20100430
  Transmission Date: 20111010
  Serious: No
  Sender: FDA-Public Use
  Company Number: A0857482A

PATIENT
  Age: 55 Year
  Sex: Female

DRUGS (2)
  1. ALTABAX [Suspect]
     Indication: SKIN IRRITATION
     Dosage: 1APP TWICE PER DAY
     Route: 061
     Dates: start: 20100422, end: 20100429
  2. NO CONCURRENT MEDICATION [Concomitant]

REACTIONS (5)
  - APPLICATION SITE INFLAMMATION [None]
  - APPLICATION SITE HYPERAESTHESIA [None]
  - SKIN IRRITATION [None]
  - APPLICATION SITE ERYTHEMA [None]
  - APPLICATION SITE PAIN [None]
